FAERS Safety Report 20450747 (Version 1)
Quarter: 2022Q1

REPORT INFORMATION
  Report Type: Spontaneous
  Country: US (occurrence: None)
  Receive Date: 20220209
  Receipt Date: 20220209
  Transmission Date: 20220423
  Serious: No
  Sender: FDA-Public Use
  Company Number: None

PATIENT
  Age: 54 Year
  Sex: Female
  Weight: 68.4 kg

DRUGS (1)
  1. VUITY [Suspect]
     Active Substance: PILOCARPINE HYDROCHLORIDE
     Indication: Presbyopia
     Dosage: OTHER QUANTITY : 1 DROP(S);?
     Route: 047

REACTIONS (6)
  - Headache [None]
  - Eye disorder [None]
  - Vision blurred [None]
  - Vertigo [None]
  - Anxiety [None]
  - Hypertension [None]

NARRATIVE: CASE EVENT DATE: 20220104
